FAERS Safety Report 13755103 (Version 3)
Quarter: 2018Q2

REPORT INFORMATION
  Report Type: Report from Study
  Country: US (occurrence: US)
  Receive Date: 20170714
  Receipt Date: 20180518
  Transmission Date: 20180711
  Serious: Yes (Other)
  Sender: FDA-Public Use
  Company Number: US-CIPLA LTD.-2017US12094

PATIENT

DRUGS (8)
  1. CELECOXIB. [Interacting]
     Active Substance: CELECOXIB
     Indication: NEOPLASM OF THYMUS
     Dosage: 200 MG, BID, DAY 1 TO DAY 14 ON 21 DAY CYCLE
     Route: 048
  2. CELECOXIB. [Interacting]
     Active Substance: CELECOXIB
     Indication: MALIGNANT NEOPLASM PROGRESSION
  3. ETOPOSIDE. [Suspect]
     Active Substance: ETOPOSIDE
     Indication: SMALL CELL CARCINOMA
     Dosage: UNK
     Route: 065
  4. CAPECITABINE. [Interacting]
     Active Substance: CAPECITABINE
     Indication: MALIGNANT NEOPLASM PROGRESSION
     Dosage: 750 MG/M2 BY MOUTH TWICE DAILY (ROUNDED TO THE NEAREST 500 MG)
     Route: 048
  5. PACLITAXEL. [Suspect]
     Active Substance: PACLITAXEL
     Indication: RECURRENT CANCER
     Dosage: UNK
     Route: 065
  6. CARBOPLATIN. [Suspect]
     Active Substance: CARBOPLATIN
     Indication: SMALL CELL CARCINOMA
     Dosage: 6 CYCLES
     Route: 065
  7. CAPECITABINE. [Interacting]
     Active Substance: CAPECITABINE
     Indication: NEOPLASM OF THYMUS
     Dosage: 1000 MG/M2, BID, DAY 1 TO DAY 14 ON A 21 DAY CYCLE
     Route: 048
  8. CARBOPLATIN. [Suspect]
     Active Substance: CARBOPLATIN
     Indication: RECURRENT CANCER

REACTIONS (3)
  - Palmar-plantar erythrodysaesthesia syndrome [Unknown]
  - Malignant neoplasm progression [Unknown]
  - Recurrent cancer [Unknown]
